FAERS Safety Report 9682175 (Version 1)
Quarter: 2013Q4

REPORT INFORMATION
  Report Type: Report from Study
  Country: US (occurrence: US)
  Receive Date: 20131111
  Receipt Date: 20131111
  Transmission Date: 20140711
  Serious: Yes (Hospitalization)
  Sender: FDA-Public Use
  Company Number: US-ABBVIE-13P-163-1165686-00

PATIENT
  Age: 72 Year
  Sex: Female
  Weight: 76.27 kg

DRUGS (3)
  1. HUMIRA [Suspect]
     Indication: RHEUMATOID ARTHRITIS
     Dates: start: 2010, end: 201309
  2. HUMIRA [Suspect]
     Dates: start: 20131025
  3. VITAMINS [Concomitant]
     Indication: PRODUCT USED FOR UNKNOWN INDICATION

REACTIONS (2)
  - Pain [Recovered/Resolved]
  - Device related infection [Recovered/Resolved]
